FAERS Safety Report 4765528-3 (Version None)
Quarter: 2005Q3

REPORT INFORMATION
  Report Type: 
  Country: None (occurrence: None)
  Receive Date: 20050906
  Receipt Date: 20050824
  Transmission Date: 20060218
  Serious: Yes (Other)
  Sender: FDA-Public Use
  Company Number: 2005120337

PATIENT
  Age: 7 Year
  Sex: Female

DRUGS (1)
  1. GENOTROPIN [Suspect]
     Indication: HYPOPITUITARISM

REACTIONS (7)
  - COGNITIVE DISORDER [None]
  - ENURESIS [None]
  - GAIT DISTURBANCE [None]
  - HYPERREFLEXIA [None]
  - LIPOMA [None]
  - MUSCLE ATROPHY [None]
  - SPINAL CORD DISORDER [None]
